FAERS Safety Report 5915894-8 (Version None)
Quarter: 2008Q4

REPORT INFORMATION
  Report Type: 
  Country: None (occurrence: None)
  Receive Date: 20081010
  Receipt Date: 20081002
  Transmission Date: 20090506
  Serious: Yes (Other)
  Sender: FDA-Public Use
  Company Number: US-PFIZER INC-2008083782

PATIENT
  Sex: Female
  Weight: 72 kg

DRUGS (7)
  1. NEURONTIN [Suspect]
  2. LYRICA [Suspect]
     Indication: MYALGIA
     Route: 048
     Dates: start: 20080922, end: 20080925
  3. ALL OTHER THERAPEUTIC PRODUCTS [Concomitant]
     Indication: PAIN
  4. SYNTHROID [Concomitant]
  5. PREMARIN [Concomitant]
  6. NEXIUM [Concomitant]
  7. AVAPRO [Concomitant]

REACTIONS (2)
  - CONVULSION [None]
  - DRUG INTOLERANCE [None]
